FAERS Safety Report 6704756-4 (Version None)
Quarter: 2010Q2

REPORT INFORMATION
  Report Type: 
  Country: None (occurrence: None)
  Receive Date: 20100430
  Receipt Date: 20091210
  Transmission Date: 20101027
  Serious: No
  Sender: FDA-Public Use
  Company Number: US-BAUSCH-2009BL006478

PATIENT
  Age: 48 Year
  Sex: Female

DRUGS (2)
  1. ALREX [Suspect]
     Indication: EYE INFLAMMATION
     Route: 047
     Dates: start: 20091001, end: 20091102
  2. PROPRANOLOL [Concomitant]
     Indication: HYPERTENSION

REACTIONS (1)
  - INTRAOCULAR PRESSURE INCREASED [None]
